FAERS Safety Report 25706192 (Version 1)
Quarter: 2025Q3

REPORT INFORMATION
  Report Type: Spontaneous
  Country: US (occurrence: US)
  Receive Date: 20250820
  Receipt Date: 20250820
  Transmission Date: 20251020
  Serious: No
  Sender: SPRINGWORKS THERAPEUTIC
  Company Number: US-SPRINGWORKS THERAPEUTICS-SW-002737

PATIENT

DRUGS (1)
  1. GOMEKLI [Suspect]
     Active Substance: MIRDAMETINIB
     Indication: Product used for unknown indication

REACTIONS (2)
  - Acne cystic [Unknown]
  - Facial pain [Unknown]
